FAERS Safety Report 7586347-9 (Version None)
Quarter: 2011Q2

REPORT INFORMATION
  Report Type: 
  Country: None (occurrence: None)
  Receive Date: 20110624
  Receipt Date: 20110620
  Transmission Date: 20111010
  Serious: Yes (Death, Other)
  Sender: FDA-Public Use
  Company Number: 2010SP054767

PATIENT
  Age: 63 Year
  Sex: Male
  Weight: 48.9 kg

DRUGS (2)
  1. PEG-INTRON [Suspect]
     Indication: HEPATIC CIRRHOSIS
     Dosage: 100 MCG;QW; SC
     Route: 058
     Dates: start: 20100406, end: 20100406
  2. REBETOL [Suspect]
     Indication: HEPATIC CIRRHOSIS
     Dosage: 800 MG;QD;PO
     Route: 048
     Dates: start: 20100406, end: 20100407

REACTIONS (7)
  - HEPATIC FAILURE [None]
  - AUTOIMMUNE HEPATITIS [None]
  - DISEASE PROGRESSION [None]
  - PERITONITIS BACTERIAL [None]
  - OESOPHAGEAL VARICES HAEMORRHAGE [None]
  - CONDITION AGGRAVATED [None]
  - ASCITES [None]
